FAERS Safety Report 8424906-1 (Version None)
Quarter: 2012Q2

REPORT INFORMATION
  Report Type: 
  Country: None (occurrence: None)
  Receive Date: 20120611
  Receipt Date: 20120608
  Transmission Date: 20120825
  Serious: No
  Sender: FDA-Public Use
  Company Number: US-PFIZER INC-2012138805

PATIENT
  Sex: Female
  Weight: 63.5 kg

DRUGS (6)
  1. SYNTHROID [Concomitant]
     Indication: THYROID DISORDER
     Dosage: 100 UG, 1X/DAY
  2. BENICAR HCT [Concomitant]
     Indication: HYPERTENSION
     Dosage: 20/12.5MG,DAILY
  3. CHANTIX [Suspect]
     Indication: SMOKING CESSATION THERAPY
     Dosage: 0.5 MG, 1X/DAY
     Dates: start: 20120501, end: 20120501
  4. METFORMIN [Concomitant]
     Indication: TYPE 2 DIABETES MELLITUS
     Dosage: 500 MG, 2X/DAY
  5. KLONOPIN [Concomitant]
     Indication: ANXIETY
     Dosage: 0.5-1MG UP TO THREE TIMES A DAY AS NEEDED
  6. CHANTIX [Suspect]
     Dosage: 1 MG, 2X/DAY
     Dates: start: 20120501

REACTIONS (2)
  - ABDOMINAL DISCOMFORT [None]
  - MALAISE [None]
